FAERS Safety Report 7112790-8 (Version None)
Quarter: 2010Q4

REPORT INFORMATION
  Report Type: 
  Country: None (occurrence: None)
  Receive Date: 20101119
  Receipt Date: 20101117
  Transmission Date: 20110411
  Serious: Yes (Hospitalization, Other)
  Sender: FDA-Public Use
  Company Number: PHHY2010BR26958

PATIENT
  Sex: Male

DRUGS (4)
  1. STALEVO 100 [Suspect]
     Indication: PARKINSON'S DISEASE
     Dosage: 6 TABLETS (150/37.5/200MG) DAILY
     Route: 048
     Dates: start: 20060101
  2. STALEVO 100 [Suspect]
     Dosage: UNK
     Route: 048
  3. RIVOTRIL [Concomitant]
     Indication: SLEEP DISORDER
     Dosage: UNK
     Route: 048
     Dates: start: 20060101
  4. PAMELOR [Concomitant]
     Indication: PROPHYLAXIS
     Dosage: 1 TABLET DAILY
     Route: 048
     Dates: start: 20060101

REACTIONS (5)
  - COLECTOMY TOTAL [None]
  - CONCOMITANT DISEASE AGGRAVATED [None]
  - CONSTIPATION [None]
  - INTESTINAL ANASTOMOSIS [None]
  - INTESTINAL OBSTRUCTION [None]
